FAERS Safety Report 12953773 (Version 1)
Quarter: 2016Q4

REPORT INFORMATION
  Report Type: Spontaneous
  Country: US (occurrence: US)
  Receive Date: 20161118
  Receipt Date: 20161118
  Transmission Date: 20170207
  Serious: No
  Sender: FDA-Public Use
  Company Number: US-LEO PHARMA-244795

PATIENT
  Age: 62 Year
  Sex: Female

DRUGS (3)
  1. SYNTHROID [Concomitant]
     Active Substance: LEVOTHYROXINE SODIUM
     Indication: PRODUCT USED FOR UNKNOWN INDICATION
  2. NISOLDIPINE XL [Concomitant]
     Indication: PRODUCT USED FOR UNKNOWN INDICATION
  3. PICATO [Suspect]
     Active Substance: INGENOL MEBUTATE
     Indication: BOWEN^S DISEASE
     Route: 061
     Dates: start: 20161018, end: 20161020

REACTIONS (4)
  - Headache [Recovering/Resolving]
  - Application site pruritus [Not Recovered/Not Resolved]
  - Product use issue [Unknown]
  - Application site scab [Not Recovered/Not Resolved]
